FAERS Safety Report 19451980 (Version 1)
Quarter: 2021Q2

REPORT INFORMATION
  Report Type: Spontaneous
  Country: US (occurrence: US)
  Receive Date: 20210623
  Receipt Date: 20210623
  Transmission Date: 20210717
  Serious: Yes (Other)
  Sender: FDA-Public Use
  Company Number: US-SA-2021SA203899

PATIENT
  Age: 70 Year
  Sex: Male

DRUGS (1)
  1. DUPIXENT [Suspect]
     Active Substance: DUPILUMAB
     Indication: ARTHRALGIA
     Dosage: 300 MG, QOW
     Route: 058
     Dates: start: 201811

REACTIONS (2)
  - Brachytherapy to prostate [Unknown]
  - Product use in unapproved indication [Unknown]
